FAERS Safety Report 5664377-1 (Version None)
Quarter: 2008Q1

REPORT INFORMATION
  Report Type: 
  Country: None (occurrence: None)
  Receive Date: 20080312
  Receipt Date: 20080228
  Transmission Date: 20080703
  Serious: Yes (Hospitalization)
  Sender: FDA-Public Use
  Company Number: 2008BI005886

PATIENT
  Age: 50 Year
  Sex: Female
  Weight: 98.8842 kg

DRUGS (1)
  1. TYSABRI [Suspect]
     Indication: MULTIPLE SCLEROSIS
     Dosage: 300 MG; QM; IV
     Route: 042
     Dates: start: 20070713

REACTIONS (2)
  - FALL [None]
  - INTERVERTEBRAL DISC PROTRUSION [None]
